FAERS Safety Report 8159784-1 (Version None)
Quarter: 2012Q1

REPORT INFORMATION
  Report Type: 
  Country: None (occurrence: None)
  Receive Date: 20120223
  Receipt Date: 20120210
  Transmission Date: 20120608
  Serious: Yes (Disabling, Other)
  Sender: FDA-Public Use
  Company Number: US-ACTELION-A-NJ2012-60170

PATIENT

DRUGS (2)
  1. TRACLEER [Suspect]
     Dosage: UNK MG, BID
     Route: 048
     Dates: start: 20081128, end: 20110101
  2. TRACLEER [Suspect]
     Indication: PULMONARY ARTERIAL HYPERTENSION
     Dosage: 125 MG, BID
     Route: 048
     Dates: end: 20120130

REACTIONS (14)
  - DIZZINESS [None]
  - THYROID MASS [None]
  - GAIT DISTURBANCE [None]
  - WEIGHT DECREASED [None]
  - MOTOR NEURONE DISEASE [None]
  - PARAESTHESIA [None]
  - DYSARTHRIA [None]
  - MUSCULAR WEAKNESS [None]
  - INTERVERTEBRAL DISC PROTRUSION [None]
  - ATROPHY [None]
  - PARANEOPLASTIC SYNDROME [None]
  - DYSPNOEA [None]
  - FALL [None]
  - CERVICAL SPINAL STENOSIS [None]
